FAERS Safety Report 8907902 (Version 5)
Quarter: 2013Q2

REPORT INFORMATION
  Report Type: Spontaneous
  Country: US (occurrence: US)
  Receive Date: 20121114
  Receipt Date: 20130614
  Transmission Date: 20140414
  Serious: Yes (Other)
  Sender: FDA-Public Use
  Company Number: US-009507513-1211USA004511

PATIENT
  Age: 20 Year
  Sex: Female
  Weight: 90.7 kg

DRUGS (2)
  1. IMPLANON [Suspect]
     Indication: CONTRACEPTION
     Dosage: UNK
     Dates: start: 20110510
  2. VALTREX [Concomitant]

REACTIONS (6)
  - Convulsion [Unknown]
  - Unintended pregnancy [Unknown]
  - Abdominal discomfort [Unknown]
  - Menorrhagia [Unknown]
  - Menstruation irregular [Unknown]
  - Medical device complication [Unknown]
